FAERS Safety Report 6490812-5 (Version None)
Quarter: 2009Q4

REPORT INFORMATION
  Report Type: 
  Country: None (occurrence: None)
  Receive Date: 20091211
  Receipt Date: 20091201
  Transmission Date: 20100525
  Serious: Yes (Other)
  Sender: FDA-Public Use
  Company Number: BR-ABBOTT-09P-020-0611538-00

PATIENT
  Sex: Female
  Weight: 60 kg

DRUGS (14)
  1. HUMIRA [Suspect]
     Indication: ANKYLOSING SPONDYLITIS
     Route: 058
     Dates: end: 20091027
  2. FEXOFENADINE [Concomitant]
     Indication: DRUG USE FOR UNKNOWN INDICATION
     Route: 048
     Dates: end: 20091027
  3. PARACETAMOL [Concomitant]
     Indication: HEADACHE
     Route: 048
     Dates: end: 20091027
  4. PARACETAMOL [Concomitant]
     Indication: PROPHYLAXIS
  5. PREDNISONE TAB [Concomitant]
     Indication: BACK PAIN
     Dosage: 10 OR 20 MG
     Route: 048
     Dates: start: 20090401, end: 20091001
  6. CAPTOPRIL [Concomitant]
     Indication: HYPERTENSION
     Route: 048
     Dates: start: 20030101
  7. AMLODIPINE [Concomitant]
     Indication: HYPERTENSION
     Route: 048
     Dates: start: 20060101
  8. HYDROCHLOROTHIAZIDE [Concomitant]
     Indication: HYPERTENSION
     Route: 048
     Dates: start: 20030101
  9. METHOTREXATE [Concomitant]
     Indication: ANKYLOSING SPONDYLITIS
     Route: 048
     Dates: start: 20000101
  10. MESALAZINE [Concomitant]
     Indication: CROHN'S DISEASE
     Route: 048
     Dates: start: 20090901
  11. SERTRALINE HCL [Concomitant]
     Indication: DEPRESSION
     Route: 048
     Dates: start: 20070101
  12. CLONAZEPAM [Concomitant]
     Indication: SLEEP DISORDER THERAPY
     Route: 048
     Dates: start: 20060101
  13. TYLEX [Concomitant]
     Indication: PAIN
     Dosage: 1 PER DAY (SPORADICALLY)
     Route: 048
     Dates: start: 20070101
  14. OMEPRAZOLE [Concomitant]
     Indication: GASTRIC DISORDER
     Route: 048
     Dates: start: 20030101

REACTIONS (13)
  - ANAPHYLACTIC SHOCK [None]
  - ASTHENIA [None]
  - CHEST PAIN [None]
  - CYANOSIS [None]
  - HYPERTENSION [None]
  - HYPOAESTHESIA [None]
  - LOCAL SWELLING [None]
  - MALAISE [None]
  - NAUSEA [None]
  - OEDEMA PERIPHERAL [None]
  - PAIN IN EXTREMITY [None]
  - PNEUMONIA [None]
  - URINARY TRACT INFECTION [None]
